FAERS Safety Report 7450425-5 (Version None)
Quarter: 2011Q2

REPORT INFORMATION
  Report Type: 
  Country: None (occurrence: None)
  Receive Date: 20110422
  Receipt Date: 20110418
  Transmission Date: 20111010
  Serious: Yes (Life-Threatening, Hospitalization, Other)
  Sender: FDA-Public Use
  Company Number: DSU-2011-02791

PATIENT
  Age: 82 Year
  Sex: Male
  Weight: 83 kg

DRUGS (2)
  1. BENICAR HCT [Suspect]
     Indication: ESSENTIAL HYPERTENSION
     Dosage: 20/12.5 MG (QD), PER ORAL; 20/12.5 MG (ORAL) PER ORAL
     Route: 048
     Dates: start: 20100508
  2. BENICAR HCT [Suspect]
     Indication: ESSENTIAL HYPERTENSION
     Dosage: 20/12.5 MG (QD), PER ORAL; 20/12.5 MG (ORAL) PER ORAL
     Route: 048
     Dates: start: 20100323, end: 20100504

REACTIONS (13)
  - PALLOR [None]
  - HYPERURICAEMIA [None]
  - DIZZINESS [None]
  - FLUID INTAKE REDUCED [None]
  - FEELING ABNORMAL [None]
  - OROPHARYNGEAL PAIN [None]
  - PERIPHERAL COLDNESS [None]
  - HYPOPHAGIA [None]
  - SHOCK [None]
  - BLOOD CREATINE PHOSPHOKINASE INCREASED [None]
  - HYPERTHERMIA [None]
  - BACK PAIN [None]
  - BLOOD CREATININE INCREASED [None]
